FAERS Safety Report 5085314-7 (Version None)
Quarter: 2006Q3

REPORT INFORMATION
  Report Type: 
  Country: None (occurrence: None)
  Receive Date: 20060817
  Receipt Date: 20060805
  Transmission Date: 20061208
  Serious: Yes (Other)
  Sender: FDA-Public Use
  Company Number: 2006030103

PATIENT
  Age: 82 Year
  Sex: Female
  Weight: 65.7716 kg

DRUGS (9)
  1. LIPITOR [Suspect]
     Indication: BLOOD CHOLESTEROL INCREASED
     Dosage: 20MG CUT IN HALF (20 MG, 1 IN 1 D) ORAL
     Route: 048
  2. METOPROLOL TARTRATE [Concomitant]
  3. ISOSORBIDE MONONITRATE [Concomitant]
  4. ASPIRIN [Concomitant]
  5. DIURETICS [Concomitant]
  6. NIFEDIPINE [Concomitant]
  7. SYNTHROID [Concomitant]
  8. OPHTHALMOLOGICALS [Concomitant]
  9. BOTOX [Concomitant]

REACTIONS (4)
  - BLEPHAROSPASM [None]
  - DRY SKIN [None]
  - EYE DISORDER [None]
  - EYELID FUNCTION DISORDER [None]
